FAERS Safety Report 11823825 (Version 2)
Quarter: 2016Q1

REPORT INFORMATION
  Report Type: Report from Study
  Country: CA (occurrence: CA)
  Receive Date: 20151210
  Receipt Date: 20160205
  Transmission Date: 20160525
  Serious: Yes (Other)
  Sender: FDA-Public Use
  Company Number: CA-JNJFOC-20151205751

PATIENT
  Age: 21 Year
  Sex: Male
  Weight: 59.1 kg

DRUGS (1)
  1. REMICADE [Suspect]
     Active Substance: INFLIXIMAB
     Indication: COLITIS ULCERATIVE
     Route: 042

REACTIONS (4)
  - Blood test [Unknown]
  - Influenza like illness [Unknown]
  - Myalgia [Unknown]
  - Palpitations [Unknown]

NARRATIVE: CASE EVENT DATE: 201511
